FAERS Safety Report 5869147-7 (Version None)
Quarter: 2008Q3

REPORT INFORMATION
  Report Type: 
  Country: None (occurrence: None)
  Receive Date: 20080903
  Receipt Date: 20080822
  Transmission Date: 20090109
  Serious: Yes (Hospitalization)
  Sender: FDA-Public Use
  Company Number: GB-GENENTECH-259429

PATIENT
  Sex: Female
  Weight: 123.7 kg

DRUGS (3)
  1. BEVACIZUMAB [Suspect]
     Indication: OVARIAN CANCER
     Dosage: 850 MG, UNK
     Route: 042
     Dates: start: 20080204
  2. PACLITAXEL [Suspect]
     Indication: OVARIAN CANCER
     Dosage: 350 MG, UNK
     Route: 042
     Dates: start: 20080204
  3. CARBOPLATIN [Suspect]
     Indication: OVARIAN CANCER
     Dosage: 800 MG, UNK
     Route: 042
     Dates: start: 20080204

REACTIONS (2)
  - BODY TEMPERATURE INCREASED [None]
  - CATHETER RELATED INFECTION [None]
